FAERS Safety Report 12818063 (Version 6)
Quarter: 2018Q2

REPORT INFORMATION
  Report Type: Spontaneous
  Country: US (occurrence: US)
  Receive Date: 20161006
  Receipt Date: 20180420
  Transmission Date: 20180711
  Serious: No
  Sender: FDA-Public Use
  Company Number: US-PFIZER INC-2016464685

PATIENT
  Age: 61 Year
  Sex: Female

DRUGS (7)
  1. PROCHLORPERAZINE. [Concomitant]
     Active Substance: PROCHLORPERAZINE
     Indication: ABDOMINAL DISCOMFORT
     Dosage: UNK, AS NEEDED
     Dates: start: 201701
  2. EXEMESTANE. [Concomitant]
     Active Substance: EXEMESTANE
     Dosage: 25 MG, 1X/DAY
     Dates: start: 201711
  3. FASLODEX [Suspect]
     Active Substance: FULVESTRANT
     Indication: BREAST CANCER FEMALE
     Dosage: UNK (FOR 15 YEARS)
  4. IBRANCE [Suspect]
     Active Substance: PALBOCICLIB
     Indication: BREAST CANCER FEMALE
     Dosage: 125 MG, CYCLIC (DAILY FOR 21 DAYS)
     Route: 048
     Dates: start: 20160930, end: 20160930
  5. FASLODEX [Suspect]
     Active Substance: FULVESTRANT
     Dosage: 2 DF, MONTHLY MONTHLY 2 SHOTS
     Dates: start: 201609
  6. IBRANCE [Suspect]
     Active Substance: PALBOCICLIB
     Dosage: 75 MG, CYCLIC (ONCE A DAY FOR 21 DAYS)
     Dates: start: 201701, end: 201801
  7. IBRANCE [Suspect]
     Active Substance: PALBOCICLIB
     Dosage: 100 MG, 1X/DAY (21 DAYS)

REACTIONS (3)
  - Neoplasm progression [Unknown]
  - Rash generalised [Recovered/Resolved]
  - Stomatitis [Recovered/Resolved]

NARRATIVE: CASE EVENT DATE: 20160930
